FAERS Safety Report 12612725 (Version 6)
Quarter: 2017Q3

REPORT INFORMATION
  Report Type: Report from Study
  Country: US (occurrence: US)
  Receive Date: 20160801
  Receipt Date: 20170817
  Transmission Date: 20171127
  Serious: Yes (Other)
  Sender: FDA-Public Use
  Company Number: US-AMGEN-USASL2016098044

PATIENT
  Age: 74 Year
  Sex: Female

DRUGS (3)
  1. METHOTREXATE. [Suspect]
     Active Substance: METHOTREXATE
     Indication: PRODUCT USED FOR UNKNOWN INDICATION
     Dosage: UNK
     Route: 065
     Dates: start: 1992
  2. ENBREL [Suspect]
     Active Substance: ETANERCEPT
     Indication: RHEUMATOID ARTHRITIS
     Dosage: 50 MG, QWK
     Route: 065
     Dates: start: 20050301, end: 2017
  3. INSULIN [Concomitant]
     Active Substance: INSULIN NOS
     Indication: DIABETES MELLITUS
     Dosage: UNK

REACTIONS (17)
  - Underdose [Unknown]
  - Confusional state [Unknown]
  - Musculoskeletal disorder [Unknown]
  - Drug dose omission [Unknown]
  - Wrong technique in product usage process [Unknown]
  - Haemorrhage [Unknown]
  - Injection site induration [Unknown]
  - Pain [Recovering/Resolving]
  - Arthritis [Not Recovered/Not Resolved]
  - Cerebrovascular accident [Unknown]
  - Memory impairment [Unknown]
  - Malaise [Unknown]
  - Injection site haemorrhage [Unknown]
  - Motor dysfunction [Unknown]
  - Injection site mass [Recovered/Resolved]
  - Gait disturbance [Unknown]
  - Disability [Unknown]

NARRATIVE: CASE EVENT DATE: 20160727
